FAERS Safety Report 9203334 (Version 2)
Quarter: 2013Q4

REPORT INFORMATION
  Report Type: Spontaneous
  Country: US (occurrence: US)
  Receive Date: 20130402
  Receipt Date: 20131219
  Transmission Date: 20140711
  Serious: Yes (Hospitalization, Disabling)
  Sender: FDA-Public Use
  Company Number: US-BAYER-2013-039085

PATIENT
  Age: 27 Year
  Sex: Female

DRUGS (4)
  1. PERCOCET [Concomitant]
     Indication: PAIN
     Dosage: ONE TO TWO EVERY 4 HOURS AS NEEDED
  2. YAZ [Suspect]
     Dosage: UNK
  3. LEVAQUIN [Concomitant]
     Dosage: 500 MG, DAILY FOR 5 ADDITIONAL DAYS
  4. FLAGYL [Concomitant]
     Dosage: 500 MG, TID
     Route: 048

REACTIONS (6)
  - Gallbladder injury [None]
  - Cholecystitis chronic [None]
  - Injury [None]
  - Pain [None]
  - General physical health deterioration [None]
  - Emotional distress [None]
